FAERS Safety Report 25422178 (Version 2)
Quarter: 2025Q3

REPORT INFORMATION
  Report Type: Report from Study
  Country: US (occurrence: US)
  Receive Date: 20250611
  Receipt Date: 20250806
  Transmission Date: 20251020
  Serious: No
  Sender: TAKEDA
  Company Number: US-TAKEDA-2025TUS051107

PATIENT
  Sex: Female
  Weight: 58 kg

DRUGS (5)
  1. VEDOLIZUMAB [Suspect]
     Active Substance: VEDOLIZUMAB
     Indication: Colitis ulcerative
  2. PROVIGIL [Concomitant]
     Active Substance: MODAFINIL
  3. ZOFRAN [Concomitant]
     Active Substance: ONDANSETRON HYDROCHLORIDE
  4. MEDROL [Concomitant]
     Active Substance: METHYLPREDNISOLONE
  5. WELLBUTRIN [Concomitant]
     Active Substance: BUPROPION HYDROCHLORIDE

REACTIONS (8)
  - Swelling [Recovered/Resolved]
  - Infusion site mass [Recovering/Resolving]
  - Arthralgia [Recovered/Resolved]
  - Brain fog [Unknown]
  - Rash macular [Unknown]
  - Fluid retention [Unknown]
  - Hypoaesthesia [Unknown]
  - Night sweats [Unknown]
